FAERS Safety Report 4614172-7 (Version None)
Quarter: 2005Q1

REPORT INFORMATION
  Report Type: 
  Country: None (occurrence: None)
  Receive Date: 20050315
  Receipt Date: 20050302
  Transmission Date: 20050727
  Serious: Yes (Hospitalization, Other)
  Sender: FDA-Public Use
  Company Number: 2005041164

PATIENT
  Sex: Female
  Weight: 181.4388 kg

DRUGS (1)
  1. DEPO-PROVERA [Suspect]
     Indication: DYSFUNCTIONAL UTERINE BLEEDING
     Dosage: 3600 MG (3600 MG, SINGLE ADMINISTRATION)

REACTIONS (8)
  - COGNITIVE DISORDER [None]
  - DEPRESSION [None]
  - DIZZINESS [None]
  - ENDOCRINE DISORDER [None]
  - FEELING ABNORMAL [None]
  - HEADACHE [None]
  - INJECTION SITE ABSCESS [None]
  - MEDICATION ERROR [None]
